FAERS Safety Report 17266666 (Version 1)
Quarter: 2020Q1

REPORT INFORMATION
  Report Type: Spontaneous
  Country: US (occurrence: US)
  Receive Date: 20200113
  Receipt Date: 20200113
  Transmission Date: 20200409
  Serious: Yes (Hospitalization)
  Sender: FDA-Public Use
  Company Number: None

PATIENT
  Age: 71 Year
  Sex: Female

DRUGS (6)
  1. GLIPIZIDE 10MG [Concomitant]
     Active Substance: GLIPIZIDE
  2. PRAVASTATIN 10MG [Concomitant]
     Active Substance: PRAVASTATIN
  3. REPATHA [Suspect]
     Active Substance: EVOLOCUMAB
     Indication: HYPERLIPIDAEMIA
     Dosage: ?          OTHER FREQUENCY:EVERY 2 WEEKS;?
     Route: 058
     Dates: start: 20190709
  4. ASPIRIN 81MG [Concomitant]
     Active Substance: ASPIRIN
  5. HUMULIN 70/30 KWIKPEN [Concomitant]
     Active Substance: INSULIN HUMAN
  6. VICTOZA [Concomitant]
     Active Substance: LIRAGLUTIDE

REACTIONS (1)
  - Urinary tract infection [None]

NARRATIVE: CASE EVENT DATE: 20200102
